FAERS Safety Report 16436804 (Version 2)
Quarter: 2019Q2

REPORT INFORMATION
  Report Type: Spontaneous
  Country: US (occurrence: US)
  Receive Date: 20190614
  Receipt Date: 20190619
  Transmission Date: 20190711
  Serious: Yes (Other)
  Sender: FDA-Public Use
  Company Number: US-PFIZER INC-2019240776

PATIENT
  Age: 69 Year
  Sex: Female

DRUGS (1)
  1. NAVANE [Suspect]
     Active Substance: THIOTHIXENE
     Dosage: 2 MG, UNK

REACTIONS (2)
  - Withdrawal syndrome [Unknown]
  - Drug dependence [Unknown]
